FAERS Safety Report 5314926-8 (Version None)
Quarter: 2007Q2

REPORT INFORMATION
  Report Type: 
  Country: None (occurrence: None)
  Receive Date: 20070502
  Receipt Date: 20070410
  Transmission Date: 20071010
  Serious: Yes (Other)
  Sender: FDA-Public Use
  Company Number: GB-JNJFOC-20070303151

PATIENT
  Sex: Male
  Weight: 88.8 kg

DRUGS (4)
  1. RISPERDAL [Suspect]
     Route: 065
  2. RISPERDAL [Suspect]
     Indication: DELUSIONAL DISORDER, UNSPECIFIED TYPE
     Route: 065
  3. SIMVASTATIN [Concomitant]
     Indication: HYPERCHOLESTEROLAEMIA
  4. METFORMIN HCL [Concomitant]
     Indication: DIABETES MELLITUS NON-INSULIN-DEPENDENT

REACTIONS (8)
  - BLOOD GLUCOSE INCREASED [None]
  - DRY SKIN [None]
  - EPISTAXIS [None]
  - GAIT DISTURBANCE [None]
  - MALAISE [None]
  - NASAL CONGESTION [None]
  - SLEEP DISORDER [None]
  - URINARY TRACT INFECTION [None]
